FAERS Safety Report 17117575 (Version 2)
Quarter: 2020Q1

REPORT INFORMATION
  Report Type: Report from Study
  Country: US (occurrence: US)
  Receive Date: 20191205
  Receipt Date: 20200317
  Transmission Date: 20200409
  Serious: Yes (Hospitalization)
  Sender: FDA-Public Use
  Company Number: US-JNJFOC-20191142519

PATIENT
  Age: 36 Year
  Sex: Male
  Weight: 93 kg

DRUGS (5)
  1. BUSPIRONE [Concomitant]
     Active Substance: BUSPIRONE HYDROCHLORIDE
     Indication: AFFECTIVE DISORDER
     Dates: start: 20191118
  2. SILDENAFIL. [Concomitant]
     Active Substance: SILDENAFIL
     Indication: ERECTILE DYSFUNCTION
     Dates: start: 20160531
  3. VORTIOXETINE. [Concomitant]
     Active Substance: VORTIOXETINE
     Indication: DEPRESSION
     Dates: start: 20190715
  4. QUETIAPINE. [Concomitant]
     Active Substance: QUETIAPINE
     Indication: AFFECTIVE DISORDER
     Dates: start: 20190924
  5. SPRAVATO [Suspect]
     Active Substance: ESKETAMINE
     Indication: DEPRESSION
     Dosage: RECEIVED 3 DOSES
     Dates: start: 20191118

REACTIONS (4)
  - Heart rate increased [Recovered/Resolved]
  - Suicidal ideation [Recovered/Resolved]
  - Hypertension [Recovered/Resolved]
  - Dissociation [Recovered/Resolved]

NARRATIVE: CASE EVENT DATE: 20191125
